FAERS Safety Report 23234453 (Version 1)
Quarter: 2023Q4

REPORT INFORMATION
  Report Type: Spontaneous
  Country: US (occurrence: None)
  Receive Date: 20231127
  Receipt Date: 20231127
  Transmission Date: 20240110
  Serious: Yes (Other)
  Sender: FDA-Public Use
  Company Number: None

PATIENT
  Age: 73 Year
  Sex: Male

DRUGS (5)
  1. TACROLIMUS [Suspect]
     Active Substance: TACROLIMUS
  2. ADVIL CAP 200MG [Concomitant]
  3. ATENOL/CHLOR TAB 50-25MG [Concomitant]
  4. CLOPIDOGREL TAB 75MG [Concomitant]
  5. LACTULOSE SOL 10GM/15 [Concomitant]

REACTIONS (1)
  - Transient ischaemic attack [None]

NARRATIVE: CASE EVENT DATE: 20231010
